FAERS Safety Report 9292486 (Version 2)
Quarter: 2013Q2

REPORT INFORMATION
  Report Type: Spontaneous
  Country: FR (occurrence: FR)
  Receive Date: 20130516
  Receipt Date: 20130607
  Transmission Date: 20140414
  Serious: Yes (Hospitalization, Other)
  Sender: FDA-Public Use
  Company Number: FR-PFIZER INC-2013147372

PATIENT
  Age: 48 Year
  Sex: Male

DRUGS (9)
  1. XANAX [Suspect]
     Dosage: 0.25 MG, UNK
     Route: 048
  2. KLIPAL CODEINE [Suspect]
     Indication: NECK PAIN
     Dosage: 3 TO 4 TABLETS DAILY
     Route: 048
     Dates: start: 2013
  3. MOGADON [Suspect]
     Dosage: 5 TO 10 MG DAILY
     Route: 048
  4. LYSANXIA [Suspect]
     Dosage: 10 TO 20 MG DAILY
     Route: 048
  5. STILNOX [Suspect]
     Dosage: 10 TO 20 MG DAILY
     Route: 048
  6. DEROXAT [Suspect]
     Route: 048
  7. MYOLASTAN [Suspect]
     Dosage: 50 MG
     Route: 048
  8. LAMALINE [Suspect]
     Route: 048
  9. DONORMYL [Concomitant]
     Dosage: 15 MG, 2X/DAY
     Route: 048

REACTIONS (6)
  - Withdrawal syndrome [Recovered/Resolved]
  - Drug dependence [Recovering/Resolving]
  - Drug abuse [Unknown]
  - Confusional state [Recovered/Resolved]
  - Agitation [Recovered/Resolved]
  - Delirium [Recovered/Resolved]
